FAERS Safety Report 8172088 (Version 2)
Quarter: 2013Q1

REPORT INFORMATION
  Report Type: Spontaneous
  Country: TW (occurrence: TW)
  Receive Date: 20111007
  Receipt Date: 20130109
  Transmission Date: 20140127
  Serious: Yes (Other)
  Sender: FDA-Public Use
  Company Number: TW-JNJFOC-20110912331

PATIENT
  Age: 62 Year
  Sex: Female

DRUGS (6)
  1. RISPERDAL [Suspect]
     Indication: SCHIZOPHRENIA
     Route: 065
  2. RISPERDAL [Suspect]
     Indication: SCHIZOPHRENIA
     Route: 065
  3. RISPERDAL [Suspect]
     Indication: SCHIZOPHRENIA
     Dosage: WITH GRADUAL TITRATION TO 4 MG/DAY DURING THE SUBSEQUENT 4 DAYS.
     Route: 065
  4. RISPERDAL [Suspect]
     Indication: SCHIZOPHRENIA
     Dosage: WITH GRADUAL TITRATION TO 4 MG/DAY DURING THE SUBSEQUENT 4 DAYS.
     Route: 065
  5. PALIPERIDONE [Suspect]
     Indication: SCHIZOPHRENIA
     Route: 048
  6. SODIUM VALPROATE [Concomitant]
     Route: 065

REACTIONS (1)
  - Mania [Recovered/Resolved]
